FAERS Safety Report 7537275-6 (Version None)
Quarter: 2011Q2

REPORT INFORMATION
  Report Type: 
  Country: None (occurrence: None)
  Receive Date: 20110609
  Receipt Date: 20110606
  Transmission Date: 20111010
  Serious: No
  Sender: FDA-Public Use
  Company Number: US-PFIZER INC-2011122405

PATIENT
  Sex: Male
  Weight: 91 kg

DRUGS (3)
  1. CHANTIX [Suspect]
     Indication: SMOKING CESSATION THERAPY
     Dosage: 0.5 MG, 1X/DAY
     Route: 048
     Dates: start: 20110501, end: 20110101
  2. CHANTIX [Suspect]
     Dosage: 1 MG, 2X/DAY
     Dates: start: 20110101
  3. BENADRYL [Suspect]
     Indication: PRURITUS
     Dosage: 25 MG, UNK
     Route: 048

REACTIONS (3)
  - PRURITUS GENERALISED [None]
  - FEELING ABNORMAL [None]
  - DIZZINESS [None]
